FAERS Safety Report 23386188 (Version 5)
Quarter: 2025Q4

REPORT INFORMATION
  Report Type: Report from Study
  Country: US (occurrence: US)
  Receive Date: 20240110
  Receipt Date: 20251031
  Transmission Date: 20260117
  Serious: Yes (Other)
  Sender: VIIV
  Company Number: US-VIIV HEALTHCARE LIMITED-US2024001116

PATIENT
  Sex: Male

DRUGS (3)
  1. CABOTEGRAVIR\RILPIVIRINE [Suspect]
     Active Substance: CABOTEGRAVIR\RILPIVIRINE
     Indication: HIV infection
     Dosage: UNK UNK, Q2M
  2. CABOTEGRAVIR\RILPIVIRINE [Suspect]
     Active Substance: CABOTEGRAVIR\RILPIVIRINE
  3. CABOTEGRAVIR\RILPIVIRINE [Suspect]
     Active Substance: CABOTEGRAVIR\RILPIVIRINE

REACTIONS (12)
  - Neuropathy peripheral [Not Recovered/Not Resolved]
  - Sepsis [Unknown]
  - Discomfort [Unknown]
  - Mental disorder [Unknown]
  - Scoliosis [Unknown]
  - Tremor [Unknown]
  - Blood HIV RNA increased [Unknown]
  - Anxiety [Unknown]
  - Decreased appetite [Unknown]
  - Cough [Not Recovered/Not Resolved]
  - Weight decreased [Unknown]
  - Mood swings [Unknown]
